FAERS Safety Report 17610124 (Version 1)
Quarter: 2020Q2

REPORT INFORMATION
  Report Type: Report from Study
  Country: MX (occurrence: MX)
  Receive Date: 20200401
  Receipt Date: 20200401
  Transmission Date: 20200713
  Serious: Yes (Other)
  Sender: FDA-Public Use
  Company Number: NVSC2020MX076627

PATIENT
  Sex: Male
  Weight: 60 kg

DRUGS (3)
  1. EXELON [Suspect]
     Active Substance: RIVASTIGMINE TARTRATE
     Indication: AMNESIA
     Dosage: 1 DF (4.6 MG), QD
     Route: 003
  2. EXELON [Suspect]
     Active Substance: RIVASTIGMINE TARTRATE
     Indication: CARDIOVASCULAR DISORDER
  3. EXELON [Suspect]
     Active Substance: RIVASTIGMINE TARTRATE
     Indication: HYPERTENSION

REACTIONS (2)
  - Product use in unapproved indication [Unknown]
  - Seizure [Unknown]
